FAERS Safety Report 8848635 (Version 1)
Quarter: 2012Q4

REPORT INFORMATION
  Report Type: 
  Country: US (occurrence: US)
  Receive Date: 20121018
  Receipt Date: 20121018
  Transmission Date: 20130627
  Serious: Yes (Other)
  Sender: FDA-Public Use
  Company Number: US-ASTRAZENECA-2012SE78190

PATIENT
  Age: 55 Year
  Sex: Male

DRUGS (1)
  1. SEROQUEL XR [Suspect]
     Route: 048

REACTIONS (5)
  - Renal failure [Unknown]
  - Bipolar disorder [Unknown]
  - Cardiac disorder [Unknown]
  - Hypertension [Unknown]
  - Blood cholesterol increased [Unknown]
